FAERS Safety Report 9196536 (Version 2)
Quarter: 2013Q2

REPORT INFORMATION
  Report Type: Spontaneous
  Country: US (occurrence: US)
  Receive Date: 20130328
  Receipt Date: 20130515
  Transmission Date: 20140414
  Serious: Yes (Other)
  Sender: FDA-Public Use
  Company Number: US-PFIZER INC-2013094741

PATIENT
  Age: 7 Year
  Sex: Male
  Weight: 22.68 kg

DRUGS (3)
  1. CHILDRENS ADVIL [Suspect]
     Indication: NASOPHARYNGITIS
     Dosage: TWO TEASPOONS
     Route: 048
     Dates: start: 20130318
  2. CHILDRENS ADVIL [Suspect]
     Indication: NASAL CONGESTION
  3. CHILDRENS ADVIL [Suspect]
     Indication: PYREXIA

REACTIONS (2)
  - Angina pectoris [Not Recovered/Not Resolved]
  - Drug ineffective [Unknown]
